FAERS Safety Report 11674512 (Version 1)
Quarter: 2015Q4

REPORT INFORMATION
  Report Type: Report from Study
  Country: JP (occurrence: JP)
  Receive Date: 20151028
  Receipt Date: 20151028
  Transmission Date: 20160304
  Serious: Yes (Hospitalization, Other)
  Sender: FDA-Public Use
  Company Number: JP-ASTELLAS-2009JP002621

PATIENT
  Age: 52 Year
  Sex: Male
  Weight: 51 kg

DRUGS (167)
  1. TACROLIMUS. [Suspect]
     Active Substance: TACROLIMUS
     Route: 048
     Dates: start: 20070729, end: 20070814
  2. TACROLIMUS. [Suspect]
     Active Substance: TACROLIMUS
     Route: 048
     Dates: start: 20070815, end: 20070828
  3. TACROLIMUS. [Suspect]
     Active Substance: TACROLIMUS
     Route: 048
     Dates: start: 20070829, end: 20070911
  4. TACROLIMUS. [Suspect]
     Active Substance: TACROLIMUS
     Route: 048
     Dates: start: 20070912, end: 20080513
  5. TACROLIMUS. [Suspect]
     Active Substance: TACROLIMUS
     Route: 048
     Dates: start: 20080514, end: 20080805
  6. TACROLIMUS. [Suspect]
     Active Substance: TACROLIMUS
     Route: 048
     Dates: start: 20130306, end: 20130402
  7. PREDONINE [Suspect]
     Active Substance: PREDNISOLONE\PREDNISOLONE ACETATE\PREDNISOLONE SODIUM SUCCINATE
     Indication: LUPUS NEPHRITIS
     Route: 048
     Dates: end: 20070718
  8. PREDONINE [Suspect]
     Active Substance: PREDNISOLONE\PREDNISOLONE ACETATE\PREDNISOLONE SODIUM SUCCINATE
     Route: 048
     Dates: start: 20070816, end: 20071022
  9. PREDONINE [Suspect]
     Active Substance: PREDNISOLONE\PREDNISOLONE ACETATE\PREDNISOLONE SODIUM SUCCINATE
     Route: 048
     Dates: start: 20150415
  10. RHEUMATREX [Concomitant]
     Active Substance: METHOTREXATE SODIUM
     Indication: LUPUS NEPHRITIS
     Route: 048
     Dates: start: 20080108, end: 20080129
  11. MYSLEE [Concomitant]
     Active Substance: ZOLPIDEM TARTRATE
     Indication: PRODUCT USED FOR UNKNOWN INDICATION
     Route: 048
     Dates: start: 20070815, end: 20070828
  12. SENNOSIDE                          /00571901/ [Concomitant]
     Active Substance: SENNOSIDES A AND B
     Route: 048
     Dates: start: 20090422, end: 20100720
  13. MAGNESIUM OXIDE. [Concomitant]
     Active Substance: MAGNESIUM OXIDE
     Indication: PRODUCT USED FOR UNKNOWN INDICATION
     Route: 048
     Dates: start: 20080319, end: 20080715
  14. METHYCOBAL [Concomitant]
     Active Substance: METHYLCOBALAMIN
     Indication: NEUROPATHY PERIPHERAL
     Route: 048
     Dates: start: 20080130, end: 20091013
  15. METHYCOBAL [Concomitant]
     Active Substance: METHYLCOBALAMIN
     Route: 048
     Dates: start: 20091014
  16. PURSENNID                          /00142207/ [Concomitant]
     Active Substance: SENNOSIDES A AND B
     Indication: PRODUCT USED FOR UNKNOWN INDICATION
     Route: 048
     Dates: start: 20071007, end: 20080107
  17. RIMATIL [Concomitant]
     Active Substance: BUCILLAMINE
     Indication: PRODUCT USED FOR UNKNOWN INDICATION
     Route: 048
     Dates: start: 20071023, end: 20071119
  18. DOGMATYL [Concomitant]
     Active Substance: SULPIRIDE
     Route: 048
     Dates: start: 20080514, end: 20080603
  19. LEUCOVORIN                         /00566701/ [Concomitant]
     Active Substance: LEUCOVORIN
     Indication: NEUROPATHY PERIPHERAL
     Route: 048
     Dates: start: 20080108, end: 20080129
  20. AZULFIDINE EN-TABS [Concomitant]
     Active Substance: SULFASALAZINE
     Dosage: 0.5 G, ONCE DAILY
     Route: 048
     Dates: start: 20081008, end: 20100209
  21. ANPLAG [Concomitant]
     Active Substance: SARPOGRELATE
     Route: 048
     Dates: start: 20110706, end: 20130402
  22. BAYASPIRIN [Concomitant]
     Active Substance: ASPIRIN
     Indication: SYSTEMIC LUPUS ERYTHEMATOSUS
     Route: 048
     Dates: start: 20090107, end: 20100524
  23. TAKEPRON [Concomitant]
     Active Substance: LANSOPRAZOLE
     Indication: GASTRIC CANCER
     Route: 048
     Dates: start: 20101120, end: 20101213
  24. MUCOSTA [Concomitant]
     Active Substance: REBAMIPIDE
     Indication: GASTRIC CANCER
     Route: 048
     Dates: start: 20110124, end: 20111010
  25. ALLERMIST [Concomitant]
     Active Substance: FLUTICASONE FUROATE
     Indication: RHINITIS ALLERGIC
     Route: 045
     Dates: start: 20111102, end: 20130430
  26. YOKUKANSANKACHIMPIHANGE [Concomitant]
     Indication: PRODUCT USED FOR UNKNOWN INDICATION
     Route: 048
     Dates: start: 20120704, end: 20120828
  27. URSO [Concomitant]
     Active Substance: URSODIOL
     Indication: HEPATIC FUNCTION ABNORMAL
     Route: 048
     Dates: start: 20140319, end: 20140527
  28. REBAMIPIDE [Concomitant]
     Active Substance: REBAMIPIDE
     Indication: PROPHYLAXIS AGAINST GASTROINTESTINAL ULCER
     Route: 048
     Dates: start: 20150624
  29. AMITIZA [Concomitant]
     Active Substance: LUBIPROSTONE
     Indication: PRODUCT USED FOR UNKNOWN INDICATION
     Route: 048
     Dates: start: 20150624, end: 20150707
  30. AMITIZA [Concomitant]
     Active Substance: LUBIPROSTONE
     Route: 048
     Dates: start: 20150708
  31. TACROLIMUS. [Suspect]
     Active Substance: TACROLIMUS
     Route: 048
     Dates: start: 20121205, end: 20130108
  32. PREDONINE [Suspect]
     Active Substance: PREDNISOLONE\PREDNISOLONE ACETATE\PREDNISOLONE SODIUM SUCCINATE
     Route: 048
     Dates: start: 20071023, end: 20071119
  33. PREDONINE [Suspect]
     Active Substance: PREDNISOLONE\PREDNISOLONE ACETATE\PREDNISOLONE SODIUM SUCCINATE
     Route: 048
     Dates: start: 20080305, end: 20080513
  34. MAXALT [Concomitant]
     Active Substance: RIZATRIPTAN BENZOATE
     Route: 048
     Dates: start: 20131204, end: 20140422
  35. TRYPTANOL                          /00002202/ [Concomitant]
     Active Substance: AMITRIPTYLINE
     Indication: PRODUCT USED FOR UNKNOWN INDICATION
     Route: 048
     Dates: start: 20071106, end: 20071119
  36. DOGMATYL [Concomitant]
     Active Substance: SULPIRIDE
     Route: 048
     Dates: start: 20071218, end: 20080422
  37. FESIN                              /00023550/ [Concomitant]
     Active Substance: IRON SUCROSE
     Indication: IRON DEFICIENCY ANAEMIA
     Route: 042
     Dates: start: 20100623, end: 20100623
  38. FERROUS SULFATE [Concomitant]
     Active Substance: FERROUS SULFATE\FERROUS SULFATE, DRIED
     Indication: IRON DEFICIENCY ANAEMIA
     Route: 048
     Dates: start: 20110608, end: 20110906
  39. SALIGREN [Concomitant]
     Indication: PRODUCT USED FOR UNKNOWN INDICATION
     Route: 048
     Dates: start: 20121107, end: 20130709
  40. SELBEX [Concomitant]
     Active Substance: TEPRENONE
     Indication: PROPHYLAXIS AGAINST GASTROINTESTINAL ULCER
     Route: 048
     Dates: start: 20140403, end: 20150623
  41. URSO [Concomitant]
     Active Substance: URSODIOL
     Indication: PROPHYLAXIS
     Route: 048
     Dates: start: 20150415
  42. TACROLIMUS. [Suspect]
     Active Substance: TACROLIMUS
     Route: 048
     Dates: start: 20131106
  43. PREDONINE [Suspect]
     Active Substance: PREDNISOLONE\PREDNISOLONE ACETATE\PREDNISOLONE SODIUM SUCCINATE
     Route: 048
     Dates: start: 20131106, end: 20140211
  44. PREDONINE [Suspect]
     Active Substance: PREDNISOLONE\PREDNISOLONE ACETATE\PREDNISOLONE SODIUM SUCCINATE
     Route: 048
     Dates: start: 20140212, end: 20150414
  45. VOLTAREN [Suspect]
     Active Substance: DICLOFENAC SODIUM
     Dosage: UNK UNK, UNKNOWN FREQ.
     Route: 048
     Dates: end: 20110323
  46. SENNOSIDE                          /00571901/ [Concomitant]
     Active Substance: SENNOSIDES A AND B
     Route: 048
     Dates: start: 20110721, end: 20120110
  47. MAOTO [Concomitant]
     Active Substance: HERBALS
     Indication: PRODUCT USED FOR UNKNOWN INDICATION
     Route: 048
     Dates: start: 20090916, end: 20091013
  48. GASMOTIN [Concomitant]
     Active Substance: MOSAPRIDE CITRATE
     Route: 048
     Dates: start: 20080108, end: 20091013
  49. FOSAMAC [Concomitant]
     Active Substance: ALENDRONATE SODIUM
     Indication: OSTEOPOROSIS
     Route: 048
     Dates: start: 20070719, end: 20080603
  50. FOSAMAC [Concomitant]
     Active Substance: ALENDRONATE SODIUM
     Route: 048
     Dates: start: 20100922, end: 20110607
  51. CELECOX [Concomitant]
     Active Substance: CELECOXIB
     Indication: PRODUCT USED FOR UNKNOWN INDICATION
     Route: 048
     Dates: start: 20081203, end: 20090106
  52. RIMATIL [Concomitant]
     Active Substance: BUCILLAMINE
     Route: 048
     Dates: start: 20071120, end: 20071217
  53. DEPAKENE [Concomitant]
     Active Substance: VALPROIC ACID
     Indication: PRODUCT USED FOR UNKNOWN INDICATION
     Route: 048
     Dates: start: 20071106, end: 20071119
  54. LAXOBERON [Concomitant]
     Active Substance: SODIUM PICOSULFATE
     Indication: PRODUCT USED FOR UNKNOWN INDICATION
     Route: 048
     Dates: start: 20080305, end: 20080617
  55. ANPLAG [Concomitant]
     Active Substance: SARPOGRELATE
     Indication: RAYNAUD^S PHENOMENON
     Route: 048
     Dates: start: 20081022, end: 20090106
  56. ACDEAM                             /00274101/ [Concomitant]
     Indication: RHINITIS ALLERGIC
     Route: 048
     Dates: start: 20111116, end: 20111214
  57. LASIX [Concomitant]
     Active Substance: FUROSEMIDE
     Indication: OEDEMA PERIPHERAL
     Route: 048
     Dates: start: 20120829, end: 20121204
  58. SALIGREN [Concomitant]
     Route: 048
     Dates: start: 20130710, end: 20150414
  59. MEILAX [Concomitant]
     Active Substance: ETHYL LOFLAZEPATE
     Indication: INSOMNIA
     Route: 048
     Dates: start: 20130904
  60. UREPEARL [Concomitant]
     Active Substance: UREA
     Indication: SKIN ULCER
     Dosage: ADEQUATE DOSE, ONCE DAILY
     Route: 003
     Dates: start: 20121205, end: 20130108
  61. SARPOGRELATE HYDROCHLORIDE [Concomitant]
     Active Substance: SARPOGRELATE
     Indication: RAYNAUD^S PHENOMENON
     Route: 048
     Dates: start: 20150624
  62. PROSTANDIN                         /00501501/ [Concomitant]
     Indication: SKIN ULCER
     Dosage: ADEQUATE DOSE, ONCE DAILY
     Route: 003
     Dates: start: 20121205, end: 20130108
  63. TACROLIMUS. [Suspect]
     Active Substance: TACROLIMUS
     Indication: LUPUS NEPHRITIS
     Route: 048
     Dates: start: 20070704, end: 20070728
  64. PREDONINE [Suspect]
     Active Substance: PREDNISOLONE\PREDNISOLONE ACETATE\PREDNISOLONE SODIUM SUCCINATE
     Route: 048
     Dates: start: 20110209, end: 20130108
  65. MAGMITT [Concomitant]
     Active Substance: MAGNESIUM OXIDE
     Indication: PRODUCT USED FOR UNKNOWN INDICATION
     Route: 048
     Dates: start: 20090422, end: 20091110
  66. TOLEDOMIN [Concomitant]
     Active Substance: MILNACIPRAN HYDROCHLORIDE
     Indication: PRODUCT USED FOR UNKNOWN INDICATION
     Route: 048
     Dates: start: 20090422, end: 20091013
  67. TOLEDOMIN [Concomitant]
     Active Substance: MILNACIPRAN HYDROCHLORIDE
     Route: 048
     Dates: start: 20091014, end: 20091208
  68. SENNOSIDE                          /00571901/ [Concomitant]
     Active Substance: SENNOSIDES A AND B
     Indication: CONSTIPATION
     Route: 048
     Dates: start: 20080108, end: 20080603
  69. MAOTO [Concomitant]
     Active Substance: HERBALS
     Route: 048
     Dates: start: 20100210, end: 20100720
  70. SPIRIVA [Concomitant]
     Active Substance: TIOTROPIUM BROMIDE MONOHYDRATE
     Indication: CHRONIC OBSTRUCTIVE PULMONARY DISEASE
     Route: 055
     Dates: start: 20091111, end: 20111206
  71. DOGMATYL [Concomitant]
     Active Substance: SULPIRIDE
     Indication: PRODUCT USED FOR UNKNOWN INDICATION
     Route: 048
     Dates: start: 20070815, end: 20070828
  72. ALLOID G [Concomitant]
     Active Substance: SODIUM ALGINATE
     Route: 048
     Dates: start: 20090701, end: 20090707
  73. AZULFIDINE EN-TABS [Concomitant]
     Active Substance: SULFASALAZINE
     Indication: PRODUCT USED FOR UNKNOWN INDICATION
     Route: 048
     Dates: start: 20070815, end: 20070828
  74. AZULFIDINE EN-TABS [Concomitant]
     Active Substance: SULFASALAZINE
     Route: 048
     Dates: start: 20080924, end: 20081007
  75. FLOMOX                             /01418603/ [Concomitant]
     Indication: NASOPHARYNGITIS
     Route: 048
     Dates: start: 20080514, end: 20080517
  76. JZOLOFT [Concomitant]
     Active Substance: SERTRALINE HYDROCHLORIDE
     Indication: INSOMNIA
     Route: 048
     Dates: start: 20080604, end: 20080701
  77. CEROCRAL [Concomitant]
     Active Substance: IFENPRODIL
     Indication: RAYNAUD^S PHENOMENON
     Route: 048
     Dates: start: 20090826, end: 20090915
  78. DORNER [Concomitant]
     Active Substance: BERAPROST SODIUM
     Indication: RAYNAUD^S PHENOMENON
     Route: 048
     Dates: start: 20110608, end: 20130604
  79. TERNELIN [Concomitant]
     Active Substance: TIZANIDINE
     Indication: HEADACHE
     Route: 048
     Dates: start: 20090107, end: 20090203
  80. MUCODYNE [Concomitant]
     Active Substance: CARBOCYSTEINE
     Indication: RHINITIS ALLERGIC
     Route: 048
     Dates: start: 20111116, end: 20111214
  81. LIVOSTIN [Concomitant]
     Active Substance: LEVOCABASTINE HYDROCHLORIDE
     Indication: RHINITIS ALLERGIC
     Dosage: 0.025 MG, ONCE DAILY
     Route: 045
     Dates: start: 20120509, end: 20120605
  82. BONOTEO [Concomitant]
     Active Substance: MINODRONIC ACID
     Indication: OSTEOPOROSIS
     Route: 048
     Dates: start: 20120208
  83. SALIGREN [Concomitant]
     Route: 048
     Dates: start: 20150415, end: 20150623
  84. HIRUDOID                           /00723701/ [Concomitant]
     Indication: SKIN ULCER
     Dosage: ADEQUATE DOSE, ONCE DAILY
     Route: 003
     Dates: start: 20121205, end: 20130108
  85. PREDONINE [Suspect]
     Active Substance: PREDNISOLONE\PREDNISOLONE ACETATE\PREDNISOLONE SODIUM SUCCINATE
     Route: 048
     Dates: start: 20130109, end: 20130430
  86. PREDONINE [Suspect]
     Active Substance: PREDNISOLONE\PREDNISOLONE ACETATE\PREDNISOLONE SODIUM SUCCINATE
     Route: 048
     Dates: start: 20130501, end: 20130604
  87. MAOTO [Concomitant]
     Active Substance: HERBALS
     Route: 048
     Dates: start: 20091014, end: 20100209
  88. MIYA-BM [Concomitant]
     Active Substance: CLOSTRIDIUM BUTYRICUM SPORES STRAIN M-55
     Indication: PRODUCT USED FOR UNKNOWN INDICATION
     Route: 048
     Dates: start: 20100427, end: 20100720
  89. GLAKAY [Concomitant]
     Active Substance: MENATETRENONE
     Indication: PRODUCT USED FOR UNKNOWN INDICATION
     Route: 048
     Dates: start: 20100525
  90. GASMOTIN [Concomitant]
     Active Substance: MOSAPRIDE CITRATE
     Route: 048
     Dates: start: 20091014, end: 20110208
  91. SOLANAX [Concomitant]
     Active Substance: ALPRAZOLAM
     Indication: INSOMNIA
     Dosage: 0.4 MG, AS NEEDED
     Route: 048
     Dates: start: 20071106, end: 20080715
  92. FOSAMAC [Concomitant]
     Active Substance: ALENDRONATE SODIUM
     Indication: OSTEOPOROSIS
     Route: 048
     Dates: end: 20070718
  93. MYONAL                             /00287502/ [Concomitant]
     Active Substance: EPERISONE HYDROCHLORIDE
     Route: 048
     Dates: start: 20070718, end: 20070829
  94. NEUROTROPIN                        /00398601/ [Concomitant]
     Active Substance: CYANOCOBALAMIN\LIDOCAINE HYDROCHLORIDE\PYRIDOXINE HYDROCHLORIDE\THIAMINE HYDROCHLORIDE
     Indication: POST HERPETIC NEURALGIA
     Route: 048
     Dates: start: 20080514, end: 20081202
  95. DORNER [Concomitant]
     Active Substance: BERAPROST SODIUM
     Route: 048
     Dates: start: 20131204, end: 20150623
  96. LANSOPRAZOLE. [Concomitant]
     Active Substance: LANSOPRAZOLE
     Indication: PROPHYLAXIS AGAINST GASTROINTESTINAL ULCER
     Route: 048
     Dates: start: 20150624
  97. PREDONINE [Suspect]
     Active Substance: PREDNISOLONE\PREDNISOLONE ACETATE\PREDNISOLONE SODIUM SUCCINATE
     Route: 048
     Dates: start: 20070719, end: 20070815
  98. PREDONINE [Suspect]
     Active Substance: PREDNISOLONE\PREDNISOLONE ACETATE\PREDNISOLONE SODIUM SUCCINATE
     Route: 048
     Dates: start: 20130605, end: 20130903
  99. PREDONINE [Suspect]
     Active Substance: PREDNISOLONE\PREDNISOLONE ACETATE\PREDNISOLONE SODIUM SUCCINATE
     Route: 048
     Dates: start: 20130904, end: 20131001
  100. PREDONINE [Suspect]
     Active Substance: PREDNISOLONE\PREDNISOLONE ACETATE\PREDNISOLONE SODIUM SUCCINATE
     Route: 048
     Dates: start: 20131002, end: 20131105
  101. BREDININ [Concomitant]
     Active Substance: MIZORIBINE
     Route: 048
     Dates: start: 20110608, end: 20111011
  102. MYSLEE [Concomitant]
     Active Substance: ZOLPIDEM TARTRATE
     Route: 048
     Dates: start: 20070829
  103. GASCON [Concomitant]
     Active Substance: DIMETHICONE
     Indication: PRODUCT USED FOR UNKNOWN INDICATION
     Route: 048
     Dates: start: 20090422, end: 20091013
  104. GASCON [Concomitant]
     Active Substance: DIMETHICONE
     Route: 048
     Dates: start: 20091014, end: 20110208
  105. MAOTO [Concomitant]
     Active Substance: HERBALS
     Route: 048
     Dates: start: 20110309, end: 20110705
  106. MAXALT [Concomitant]
     Active Substance: RIZATRIPTAN BENZOATE
     Indication: MIGRAINE
     Route: 048
     Dates: start: 20091209, end: 20100426
  107. RIMATIL [Concomitant]
     Active Substance: BUCILLAMINE
     Route: 048
     Dates: start: 20071218, end: 20080107
  108. BAKTAR [Concomitant]
     Active Substance: SULFAMETHOXAZOLE\TRIMETHOPRIM
     Route: 048
     Dates: start: 20070912, end: 20071214
  109. ALLOID G [Concomitant]
     Active Substance: SODIUM ALGINATE
     Indication: PROPHYLAXIS
     Route: 048
     Dates: start: 20070718, end: 20070724
  110. ANPLAG [Concomitant]
     Active Substance: SARPOGRELATE
     Route: 048
     Dates: start: 20131204, end: 20150623
  111. FERROMIA [Concomitant]
     Active Substance: FERROUS CITRATE
     Indication: IRON DEFICIENCY ANAEMIA
     Route: 048
     Dates: start: 20100623, end: 20100921
  112. MUCOSOLVAN [Concomitant]
     Active Substance: AMBROXOL HYDROCHLORIDE
     Indication: RHINITIS ALLERGIC
     Route: 048
     Dates: start: 20111102, end: 20120731
  113. ROZEREM [Concomitant]
     Active Substance: RAMELTEON
     Indication: PRODUCT USED FOR UNKNOWN INDICATION
     Route: 048
     Dates: start: 20120704, end: 20140604
  114. MUCOSOLVAN L [Concomitant]
     Active Substance: AMBROXOL HYDROCHLORIDE
     Indication: RHINITIS ALLERGIC
     Route: 048
     Dates: start: 20120801, end: 20150623
  115. HANGESHASHINTO [Concomitant]
     Active Substance: HERBALS
     Indication: DECREASED APPETITE
     Route: 048
     Dates: start: 20120926, end: 20121023
  116. HIRUDOID                           /00723701/ [Concomitant]
     Indication: PROPHYLAXIS
     Dosage: ADEQUATE DOSE, ONCE DAILY
     Route: 003
     Dates: start: 20131106, end: 20140107
  117. GLYCYRON                           /00466401/ [Concomitant]
     Indication: HEPATIC FUNCTION ABNORMAL
     Route: 048
     Dates: start: 20140319, end: 20140527
  118. TACROLIMUS. [Suspect]
     Active Substance: TACROLIMUS
     Route: 048
     Dates: start: 20080822, end: 20121204
  119. PREDONINE [Suspect]
     Active Substance: PREDNISOLONE\PREDNISOLONE ACETATE\PREDNISOLONE SODIUM SUCCINATE
     Route: 048
     Dates: start: 20130904, end: 20131001
  120. ACTEMRA [Concomitant]
     Active Substance: TOCILIZUMAB
     Indication: LUPUS NEPHRITIS
     Route: 041
     Dates: start: 20100909, end: 20100909
  121. MAGMITT [Concomitant]
     Active Substance: MAGNESIUM OXIDE
     Route: 048
     Dates: start: 20091111, end: 20110208
  122. MAGMITT [Concomitant]
     Active Substance: MAGNESIUM OXIDE
     Route: 048
     Dates: start: 20121024
  123. TOLEDOMIN [Concomitant]
     Active Substance: MILNACIPRAN HYDROCHLORIDE
     Route: 048
     Dates: start: 20091209, end: 20110308
  124. SENNOSIDE                          /00571901/ [Concomitant]
     Active Substance: SENNOSIDES A AND B
     Route: 048
     Dates: start: 20121024, end: 20130205
  125. SENNOSIDE                          /00571901/ [Concomitant]
     Active Substance: SENNOSIDES A AND B
     Route: 048
     Dates: start: 20140319
  126. BONALON [Concomitant]
     Active Substance: ALENDRONATE SODIUM
     Indication: PRODUCT USED FOR UNKNOWN INDICATION
     Route: 048
     Dates: start: 20100310, end: 20100921
  127. MAGNESIUM OXIDE. [Concomitant]
     Active Substance: MAGNESIUM OXIDE
     Dosage: 0.5 G, AS NEEDED
     Route: 048
     Dates: start: 20100427, end: 20110208
  128. GASMOTIN [Concomitant]
     Active Substance: MOSAPRIDE CITRATE
     Indication: CONSTIPATION
     Route: 048
     Dates: start: 20071003, end: 20071016
  129. SOLANAX [Concomitant]
     Active Substance: ALPRAZOLAM
     Dosage: 0.8 MG, ONCE DAILY
     Route: 048
     Dates: start: 20101117, end: 20130903
  130. MAXALT [Concomitant]
     Active Substance: RIZATRIPTAN BENZOATE
     Route: 048
     Dates: start: 20120111, end: 20120207
  131. MYONAL                             /00287502/ [Concomitant]
     Active Substance: EPERISONE HYDROCHLORIDE
     Indication: PRODUCT USED FOR UNKNOWN INDICATION
     Route: 048
     Dates: end: 20070717
  132. LOXONIN [Concomitant]
     Active Substance: LOXOPROFEN SODIUM
     Route: 048
     Dates: start: 20090304, end: 20091013
  133. BAKTAR [Concomitant]
     Active Substance: SULFAMETHOXAZOLE\TRIMETHOPRIM
     Indication: PROPHYLAXIS
     Route: 048
     Dates: start: 20070704, end: 20070911
  134. WARFARIN [Concomitant]
     Active Substance: WARFARIN
     Indication: SYSTEMIC LUPUS ERYTHEMATOSUS
     Dosage: 0.5 MG, ONCE DAILY
     Route: 048
     Dates: start: 20090603, end: 20091013
  135. OPALMON [Concomitant]
     Active Substance: LIMAPROST
     Indication: RAYNAUD^S PHENOMENON
     Route: 048
     Dates: start: 20091014, end: 20100406
  136. LYRICA [Concomitant]
     Active Substance: PREGABALIN
     Indication: PRODUCT USED FOR UNKNOWN INDICATION
     Route: 048
     Dates: start: 20110406, end: 20110510
  137. PARIET [Concomitant]
     Active Substance: RABEPRAZOLE SODIUM
     Indication: GASTRIC CANCER
     Route: 048
     Dates: start: 20101012, end: 20111010
  138. SHAKUYAKUKANZOTO [Concomitant]
     Active Substance: HERBALS
     Indication: MYALGIA
     Route: 048
     Dates: start: 20110706, end: 20110906
  139. ALLEGRA [Concomitant]
     Active Substance: FEXOFENADINE HYDROCHLORIDE
     Indication: RHINITIS ALLERGIC
     Route: 048
     Dates: start: 20120509, end: 20121204
  140. ALLEGRA [Concomitant]
     Active Substance: FEXOFENADINE HYDROCHLORIDE
     Route: 048
     Dates: start: 20130403, end: 20150414
  141. BAKUMONDOTO [Concomitant]
     Active Substance: HERBALS
     Indication: DRY MOUTH
     Route: 048
     Dates: start: 20120606, end: 20121106
  142. ADOAIR [Concomitant]
     Active Substance: FLUTICASONE PROPIONATE\SALMETEROL XINAFOATE
     Indication: CHRONIC OBSTRUCTIVE PULMONARY DISEASE
     Route: 055
     Dates: start: 20121205, end: 20130205
  143. TACROLIMUS. [Suspect]
     Active Substance: TACROLIMUS
     Route: 048
     Dates: start: 20080806, end: 20080821
  144. TACROLIMUS. [Suspect]
     Active Substance: TACROLIMUS
     Route: 048
     Dates: start: 20130109, end: 20130305
  145. PREDONINE [Suspect]
     Active Substance: PREDNISOLONE\PREDNISOLONE ACETATE\PREDNISOLONE SODIUM SUCCINATE
     Route: 048
     Dates: start: 20071120, end: 20080107
  146. PREDONINE [Suspect]
     Active Substance: PREDNISOLONE\PREDNISOLONE ACETATE\PREDNISOLONE SODIUM SUCCINATE
     Route: 048
     Dates: start: 20080108, end: 20080304
  147. PREDONINE [Suspect]
     Active Substance: PREDNISOLONE\PREDNISOLONE ACETATE\PREDNISOLONE SODIUM SUCCINATE
     Route: 048
     Dates: start: 20080514, end: 20110208
  148. VOLTAREN [Suspect]
     Active Substance: DICLOFENAC SODIUM
     Indication: PRODUCT USED FOR UNKNOWN INDICATION
     Route: 048
     Dates: start: 20091014, end: 20110125
  149. METHYLPREDNISOLONE SODIUM SUCCINATE. [Concomitant]
     Active Substance: METHYLPREDNISOLONE SODIUM SUCCINATE
     Indication: LUPUS NEPHRITIS
     Route: 042
     Dates: start: 20070829, end: 20070829
  150. METHYLPREDNISOLONE SODIUM SUCCINATE. [Concomitant]
     Active Substance: METHYLPREDNISOLONE SODIUM SUCCINATE
     Route: 042
     Dates: start: 20080130, end: 20080130
  151. BREDININ [Concomitant]
     Active Substance: MIZORIBINE
     Indication: LUPUS NEPHRITIS
     Route: 048
     Dates: start: 20110511, end: 20110607
  152. OMEPRAL                            /00661201/ [Concomitant]
     Active Substance: OMEPRAZOLE
     Indication: PROPHYLAXIS
     Route: 048
     Dates: end: 20101019
  153. SPIRIVA [Concomitant]
     Active Substance: TIOTROPIUM BROMIDE MONOHYDRATE
     Route: 055
     Dates: start: 20121205, end: 20130604
  154. RHUBARB. [Concomitant]
     Active Substance: RHUBARB
     Indication: PRODUCT USED FOR UNKNOWN INDICATION
     Route: 048
     Dates: start: 20100427, end: 20100720
  155. GASMOTIN [Concomitant]
     Active Substance: MOSAPRIDE CITRATE
     Route: 048
     Dates: start: 20110419, end: 20110502
  156. CELECOX [Concomitant]
     Active Substance: CELECOXIB
     Route: 048
     Dates: start: 20110126, end: 20150623
  157. MAXALT [Concomitant]
     Active Substance: RIZATRIPTAN BENZOATE
     Route: 048
     Dates: start: 20110326, end: 20110607
  158. DOGMATYL [Concomitant]
     Active Substance: SULPIRIDE
     Route: 048
     Dates: start: 20070829, end: 20071023
  159. DOGMATYL [Concomitant]
     Active Substance: SULPIRIDE
     Route: 048
     Dates: start: 20080423, end: 20080513
  160. LOXONIN [Concomitant]
     Active Substance: LOXOPROFEN SODIUM
     Indication: PRODUCT USED FOR UNKNOWN INDICATION
     Route: 048
     Dates: end: 20081202
  161. PARIET [Concomitant]
     Active Substance: RABEPRAZOLE SODIUM
     Indication: PROPHYLAXIS
     Route: 048
     Dates: start: 20111116, end: 20111214
  162. LANSAP [Concomitant]
     Active Substance: AMOXICILLIN\CLARITHROMYCIN\LANSOPRAZOLE
     Indication: GASTRIC CANCER
     Route: 048
     Dates: start: 20101120, end: 20101126
  163. TAKEPRON [Concomitant]
     Active Substance: LANSOPRAZOLE
     Indication: PROPHYLAXIS AGAINST GASTROINTESTINAL ULCER
     Route: 048
     Dates: start: 20140501, end: 20150623
  164. ALLERMIST [Concomitant]
     Active Substance: FLUTICASONE FUROATE
     Route: 045
     Dates: start: 20141217, end: 20150414
  165. DAIKENCHUTO [Concomitant]
     Active Substance: HERBALS
     Indication: DECREASED APPETITE
     Route: 048
     Dates: start: 20121024, end: 20121106
  166. UREPEARL [Concomitant]
     Active Substance: UREA
     Indication: PROPHYLAXIS
     Dosage: ADEQUATE DOSE, ONCE DAILY
     Route: 003
     Dates: start: 20131106, end: 20140107
  167. BERAPROST NA [Concomitant]
     Active Substance: BERAPROST SODIUM
     Indication: RAYNAUD^S PHENOMENON
     Route: 048
     Dates: start: 20150624

REACTIONS (18)
  - Tremor [Recovered/Resolved]
  - Psoriasis [Recovering/Resolving]
  - Hepatic function abnormal [Recovered/Resolved]
  - Red blood cell count decreased [Recovered/Resolved]
  - Decreased appetite [Recovered/Resolved]
  - Protein total decreased [Recovered/Resolved]
  - Skin ulcer [Recovered/Resolved]
  - Post herpetic neuralgia [Recovered/Resolved]
  - Headache [Recovering/Resolving]
  - Chronic obstructive pulmonary disease [Not Recovered/Not Resolved]
  - Rhinitis allergic [Not Recovered/Not Resolved]
  - Iron deficiency anaemia [Recovered/Resolved]
  - Nasopharyngitis [Recovered/Resolved]
  - Iron deficiency anaemia [Recovered/Resolved]
  - Oedema peripheral [Recovered/Resolved]
  - Gastric cancer [Recovering/Resolving]
  - Vocal cord polyp [Recovered/Resolved]
  - Myalgia [Recovered/Resolved]

NARRATIVE: CASE EVENT DATE: 20070731
